FAERS Safety Report 23797969 (Version 1)
Quarter: 2024Q2

REPORT INFORMATION
  Report Type: Spontaneous
  Country: FR (occurrence: FR)
  Receive Date: 20240430
  Receipt Date: 20240430
  Transmission Date: 20240715
  Serious: Yes (Hospitalization)
  Sender: FDA-Public Use
  Company Number: None

PATIENT
  Age: 7 Month
  Sex: Female

DRUGS (1)
  1. QUTENZA [Suspect]
     Active Substance: CAPSAICIN
     Indication: Product used for unknown indication
     Dosage: 1 DOSAGE FORM, ONCE
     Dates: start: 20240116, end: 20240116

REACTIONS (2)
  - Bronchial irritation [Recovered/Resolved]
  - Accidental exposure to product by child [Unknown]

NARRATIVE: CASE EVENT DATE: 20240116
